FAERS Safety Report 16388378 (Version 2)
Quarter: 2019Q4

REPORT INFORMATION
  Report Type: Spontaneous
  Country: US (occurrence: US)
  Receive Date: 20190604
  Receipt Date: 20191120
  Transmission Date: 20200122
  Serious: No
  Sender: FDA-Public Use
  Company Number: US-PFIZER INC-2019234903

PATIENT
  Age: 74 Year
  Sex: Female
  Weight: 95.25 kg

DRUGS (2)
  1. LYRICA [Suspect]
     Active Substance: PREGABALIN
     Indication: FIBROMYALGIA
     Dosage: 75 MG, 2X/DAY(90 CAPSULES)
  2. LYRICA [Suspect]
     Active Substance: PREGABALIN
     Indication: NEURALGIA
     Dosage: 150 MG, 2X/DAY
     Dates: start: 201903

REACTIONS (5)
  - Feeling abnormal [Unknown]
  - Coordination abnormal [Unknown]
  - Therapeutic product effect incomplete [Unknown]
  - Somnolence [Unknown]
  - Nerve injury [Unknown]
